FAERS Safety Report 8940132 (Version 1)
Quarter: 2012Q4

REPORT INFORMATION
  Report Type: 
  Country: FR (occurrence: FR)
  Receive Date: 20121130
  Receipt Date: 20121130
  Transmission Date: 20130627
  Serious: Yes (Other)
  Sender: FDA-Public Use
  Company Number: FR-ABBOTT-12P-056-1014041-00

PATIENT
  Age: 47 Year
  Sex: Female

DRUGS (5)
  1. ZECLAR [Suspect]
     Indication: ANTIBIOTIC PROPHYLAXIS
     Route: 048
     Dates: start: 20120723
  2. RIFABUTIN [Suspect]
     Indication: ANTIBIOTIC PROPHYLAXIS
     Route: 048
     Dates: start: 20120723, end: 20121025
  3. IZILOX [Suspect]
     Indication: ANTIBIOTIC PROPHYLAXIS
     Dosage: Once
     Route: 048
     Dates: start: 20120723, end: 20121025
  4. IZILOX [Suspect]
     Dates: start: 20121010
  5. MYAMBUTOL [Suspect]
     Indication: ANTIBIOTIC PROPHYLAXIS
     Dosage: Once
     Route: 048
     Dates: start: 20120723

REACTIONS (2)
  - Arthralgia [Not Recovered/Not Resolved]
  - Gait disturbance [Not Recovered/Not Resolved]
